FAERS Safety Report 5135280-0 (Version None)
Quarter: 2006Q4

REPORT INFORMATION
  Report Type: 
  Country: None (occurrence: None)
  Receive Date: 20061024
  Receipt Date: 20061024
  Transmission Date: 20070319
  Serious: Yes (Disabling)
  Sender: FDA-Public Use
  Company Number: None

PATIENT
  Sex: Female
  Weight: 3.6 kg

DRUGS (8)
  1. OXACILLIN [Suspect]
     Indication: CELLULITIS
     Dosage: 200 MG   Q6H   IV
     Route: 042
     Dates: start: 20061017, end: 20061022
  2. METOCLOPRAMIDE [Concomitant]
  3. ACETAMINOPHEN [Concomitant]
  4. ALBUTEROL [Concomitant]
  5. CALCIUM GLUBIONATE [Concomitant]
  6. EPOETIN ALPHA [Concomitant]
  7. FERROUS SULFATE TAB [Concomitant]
  8. RANITIDINE [Concomitant]

REACTIONS (2)
  - HEPATOTOXICITY [None]
  - LIVER FUNCTION TEST ABNORMAL [None]
